FAERS Safety Report 12561055 (Version 1)
Quarter: 2016Q3

REPORT INFORMATION
  Report Type: Report from Study
  Country: US (occurrence: US)
  Receive Date: 20160715
  Receipt Date: 20160715
  Transmission Date: 20161109
  Serious: Yes (Hospitalization)
  Sender: FDA-Public Use
  Company Number: US-009507513-1607USA005142

PATIENT
  Age: 69 Year
  Sex: Female

DRUGS (3)
  1. NORCO [Concomitant]
     Active Substance: ACETAMINOPHEN\HYDROCODONE BITARTRATE
     Dosage: UNK
     Dates: start: 20160621
  2. PEMBROLIZUMAB. [Suspect]
     Active Substance: PEMBROLIZUMAB
     Indication: LUNG NEOPLASM MALIGNANT
     Dosage: 200 MG, ONCE,  CYCLE 1
     Route: 042
     Dates: start: 20160518, end: 20160518
  3. PEMBROLIZUMAB. [Suspect]
     Active Substance: PEMBROLIZUMAB
     Dosage: 200 MG, ONCE,  CYCLE 2
     Route: 042
     Dates: start: 20160608, end: 20160608

REACTIONS (4)
  - Tachycardia [Unknown]
  - Tachypnoea [Unknown]
  - Radiation pneumonitis [Unknown]
  - Headache [Unknown]

NARRATIVE: CASE EVENT DATE: 20160704
